FAERS Safety Report 8505683-2 (Version None)
Quarter: 2012Q3

REPORT INFORMATION
  Report Type: 
  Country: None (occurrence: None)
  Receive Date: 20120706
  Receipt Date: 20120706
  Transmission Date: 20120928
  Serious: Yes (Death)
  Sender: FDA-Public Use
  Company Number: None

PATIENT
  Age: 86 Year
  Sex: Male
  Weight: 81.9 kg

DRUGS (2)
  1. WARFARIN SODIUM [Suspect]
     Indication: PULMONARY EMBOLISM
     Dosage: 5 MG DAILY PO
     Route: 048
     Dates: start: 20120410, end: 20120414
  2. WARFARIN SODIUM [Suspect]
     Indication: RENAL CELL CARCINOMA
     Dosage: 5 MG DAILY PO
     Route: 048
     Dates: start: 20120410, end: 20120414

REACTIONS (7)
  - HAEMATURIA [None]
  - INTERNATIONAL NORMALISED RATIO INCREASED [None]
  - HYPOTENSION [None]
  - MENTAL STATUS CHANGES [None]
  - RETROPERITONEAL HAEMORRHAGE [None]
  - GASTROINTESTINAL HAEMORRHAGE [None]
  - METABOLIC ACIDOSIS [None]
